FAERS Safety Report 4523867-5 (Version None)
Quarter: 2004Q4

REPORT INFORMATION
  Report Type: 
  Country: None (occurrence: None)
  Receive Date: 20041209
  Receipt Date: 20041209
  Transmission Date: 20050328
  Serious: Yes (Hospitalization)
  Sender: FDA-Public Use
  Company Number: None

PATIENT
  Age: 40 Year
  Sex: Female

DRUGS (1)
  1. TB TUBERCULIN, PURIFIED PROTEIN DERIVATIVE [Suspect]

REACTIONS (7)
  - FLUSHING [None]
  - HYPERSENSITIVITY [None]
  - INJECTION SITE INDURATION [None]
  - INJECTION SITE VESICLES [None]
  - INJECTION SITE WARMTH [None]
  - PYREXIA [None]
  - TUBERCULIN TEST POSITIVE [None]
